FAERS Safety Report 4828858-2 (Version None)
Quarter: 2005Q4

REPORT INFORMATION
  Report Type: 
  Country: None (occurrence: None)
  Receive Date: 20051014
  Receipt Date: 20050701
  Transmission Date: 20060501
  Serious: No
  Sender: FDA-Public Use
  Company Number: 2005SP001811

PATIENT
  Age: 39 Year
  Sex: Female
  Weight: 80.7403 kg

DRUGS (5)
  1. LUNESTA [Suspect]
     Indication: INSOMNIA
     Dosage: 3 MG;HS
     Dates: start: 20050519, end: 20050628
  2. EFFEXOR [Concomitant]
  3. FLEXERIL [Concomitant]
  4. NEXIUM [Concomitant]
  5. LORTAB [Concomitant]

REACTIONS (1)
  - OEDEMA PERIPHERAL [None]
